FAERS Safety Report 14871619 (Version 1)
Quarter: 2018Q2

REPORT INFORMATION
  Report Type: Report from Study
  Country: None (occurrence: IL)
  Receive Date: 20180509
  Receipt Date: 20180509
  Transmission Date: 20180711
  Serious: Yes (Other)
  Sender: FDA-Public Use
  Company Number: IL-ABBVIE-18K-082-2348952-00

PATIENT
  Sex: Male

DRUGS (1)
  1. DUODOPA [Suspect]
     Active Substance: CARBIDOPA\LEVODOPA
     Indication: PARKINSON^S DISEASE
     Dosage: CURRENT MORNING DOSE 10.5ML,??CURRENT CONTINUOUS DOSE 4.1ML/HOUR,??CURRENT EXTRA DOSE 2ML
     Route: 050
     Dates: start: 20130615

REACTIONS (1)
  - Cataract [Unknown]
